FAERS Safety Report 18893449 (Version 1)
Quarter: 2021Q1

REPORT INFORMATION
  Report Type: Report from Study
  Country: IT (occurrence: IT)
  Receive Date: 20210215
  Receipt Date: 20210215
  Transmission Date: 20210420
  Serious: Yes (Other)
  Sender: FDA-Public Use
  Company Number: IT-TEVA-2021-IT-1878822

PATIENT
  Age: 60 Year
  Sex: Male

DRUGS (2)
  1. RYTMONORM [Suspect]
     Active Substance: PROPAFENONE
     Route: 041
     Dates: start: 20210101, end: 20210101
  2. ENAPREN [Concomitant]
     Active Substance: ENALAPRIL MALEATE

REACTIONS (3)
  - Loss of consciousness [Recovered/Resolved]
  - Hypotension [Recovered/Resolved]
  - Hyperhidrosis [Recovered/Resolved]

NARRATIVE: CASE EVENT DATE: 20210101
